FAERS Safety Report 19989956 (Version 1)
Quarter: 2021Q4

REPORT INFORMATION
  Report Type: Report from Study
  Country: CA (occurrence: CA)
  Receive Date: 20211025
  Receipt Date: 20211025
  Transmission Date: 20220303
  Serious: Yes (Other)
  Sender: FDA-Public Use
  Company Number: CA-JNJFOC-20210460054

PATIENT
  Age: 50 Year
  Sex: Female
  Weight: 73.5 kg

DRUGS (7)
  1. REMICADE [Suspect]
     Active Substance: INFLIXIMAB
     Indication: Crohn^s disease
     Dosage: 04/MAR/2021?5 MG/KG
     Route: 042
     Dates: start: 20201127
  2. REMICADE [Suspect]
     Active Substance: INFLIXIMAB
     Indication: Arthritis
     Route: 042
     Dates: start: 2021
  3. REMICADE [Suspect]
     Active Substance: INFLIXIMAB
     Dosage: PATIENT RECEIVED REMICADE INFUSION AS PER MEDICAL ORDER.
     Route: 042
     Dates: start: 20210304
  4. REMICADE [Suspect]
     Active Substance: INFLIXIMAB
     Dosage: DOSE-10 MG/KG. RECEIVED INFUSION ON 12-OCT-2021
     Route: 042
     Dates: end: 20211019
  5. CHOLECALCIFEROL [Concomitant]
     Active Substance: CHOLECALCIFEROL
     Indication: Product used for unknown indication
     Route: 065
  6. METHOTREXATE [Concomitant]
     Active Substance: METHOTREXATE
     Indication: Product used for unknown indication
     Route: 048
  7. FOLIC ACID [Concomitant]
     Active Substance: FOLIC ACID
     Indication: Product used for unknown indication
     Route: 048

REACTIONS (8)
  - Lupus-like syndrome [Unknown]
  - Joint stiffness [Not Recovered/Not Resolved]
  - Drug level abnormal [Unknown]
  - Arthralgia [Not Recovered/Not Resolved]
  - Abdominal pain [Unknown]
  - Fatigue [Unknown]
  - Off label use [Unknown]
  - Incorrect drug administration rate [Unknown]

NARRATIVE: CASE EVENT DATE: 20210423
